FAERS Safety Report 24291983 (Version 1)
Quarter: 2024Q3

REPORT INFORMATION
  Report Type: Spontaneous
  Country: US (occurrence: US)
  Receive Date: 20240906
  Receipt Date: 20240906
  Transmission Date: 20241017
  Serious: Yes (Other)
  Sender: TEVA
  Company Number: US-TEVA-VS-3238849

PATIENT

DRUGS (1)
  1. JUNEL [Suspect]
     Active Substance: ETHINYL ESTRADIOL\NORETHINDRONE ACETATE
     Indication: Product used for unknown indication
     Dosage: 1.5/30 TAB 1.5MG- 30MCG 21
     Route: 065

REACTIONS (1)
  - Cerebrovascular accident [Unknown]

NARRATIVE: CASE EVENT DATE: 20231201
